FAERS Safety Report 6569894-8 (Version None)
Quarter: 2010Q1

REPORT INFORMATION
  Report Type: 
  Country: None (occurrence: None)
  Receive Date: 20100204
  Receipt Date: 20100201
  Transmission Date: 20100710
  Serious: Yes (Hospitalization)
  Sender: FDA-Public Use
  Company Number: PHEH2010US00531

PATIENT
  Sex: Female

DRUGS (9)
  1. FEMARA [Suspect]
     Indication: BREAST CANCER
     Dosage: 2.5 MG, QD
     Route: 048
     Dates: start: 20040801
  2. METOPROLOL TARTRATE [Concomitant]
     Dosage: 50 MG, BID
     Route: 048
  3. NEURONTIN [Concomitant]
  4. DIOVAN HCT [Concomitant]
     Dosage: 160 MG, QD
     Route: 048
  5. ASPIRIN [Concomitant]
     Dosage: 81 MG, QD
     Route: 048
  6. LIPITOR [Concomitant]
     Dosage: 20 MG, QD
     Route: 048
  7. CARDIZEM [Concomitant]
     Dosage: 120 MG, QD
     Route: 048
  8. ALLEGRA [Concomitant]
  9. TYLENOL-500 [Concomitant]

REACTIONS (2)
  - ATRIAL FIBRILLATION [None]
  - BLOOD PRESSURE INCREASED [None]
